FAERS Safety Report 8017784-6 (Version None)
Quarter: 2012Q1

REPORT INFORMATION
  Report Type: 
  Country: None (occurrence: None)
  Receive Date: 20120103
  Receipt Date: 20111221
  Transmission Date: 20120608
  Serious: Yes (Other)
  Sender: FDA-Public Use
  Company Number: US-JNJFOC-20111209591

PATIENT
  Sex: Female
  Weight: 32.66 kg

DRUGS (1)
  1. REMICADE [Suspect]
     Indication: RHEUMATOID ARTHRITIS
     Route: 042
     Dates: end: 20110101

REACTIONS (10)
  - SPEECH DISORDER [None]
  - TENDON PAIN [None]
  - NEOPLASM SKIN [None]
  - PAIN [None]
  - OROPHARYNGEAL PAIN [None]
  - VEIN DISORDER [None]
  - OEDEMA PERIPHERAL [None]
  - LYMPHADENOPATHY [None]
  - RHEUMATOID ARTHRITIS [None]
  - TENDON DISORDER [None]
